FAERS Safety Report 11833971 (Version 1)
Quarter: 2015Q4

REPORT INFORMATION
  Report Type: Spontaneous
  Country: PL (occurrence: PL)
  Receive Date: 20151214
  Receipt Date: 20151214
  Transmission Date: 20160305
  Serious: Yes (Hospitalization)
  Sender: FDA-Public Use
  Company Number: PHHY2015PL159573

PATIENT
  Age: 4 Year
  Sex: Female

DRUGS (1)
  1. MOMETASONE [Suspect]
     Active Substance: MOMETASONE
     Indication: DERMATITIS ATOPIC
     Dosage: 30 MG, QMO
     Route: 061

REACTIONS (2)
  - Intentional product misuse [Unknown]
  - Cushing^s syndrome [Recovered/Resolved]
